FAERS Safety Report 7296432-7 (Version None)
Quarter: 2011Q1

REPORT INFORMATION
  Report Type: 
  Country: None (occurrence: None)
  Receive Date: 20110216
  Receipt Date: 20110209
  Transmission Date: 20110831
  Serious: Yes (Other)
  Sender: FDA-Public Use
  Company Number: US-BRISTOL-MYERS SQUIBB COMPANY-15541378

PATIENT

DRUGS (1)
  1. ONGLYZA [Suspect]

REACTIONS (2)
  - RECURRENT CANCER [None]
  - HEPATIC ENZYME INCREASED [None]
